FAERS Safety Report 15130668 (Version 2)
Quarter: 2018Q3

REPORT INFORMATION
  Report Type: Spontaneous
  Country: CA (occurrence: CA)
  Receive Date: 20180711
  Receipt Date: 20180725
  Transmission Date: 20181010
  Serious: Yes (Other)
  Sender: FDA-Public Use
  Company Number: CA-JNJFOC-20180712711

PATIENT
  Sex: Female

DRUGS (9)
  1. ALPRAZOLAM. [Concomitant]
     Active Substance: ALPRAZOLAM
     Route: 065
  2. PARACETAMOL [Concomitant]
     Active Substance: ACETAMINOPHEN
     Route: 065
  3. NORVASC [Concomitant]
     Active Substance: AMLODIPINE BESYLATE
     Route: 065
  4. SYNTHROID [Concomitant]
     Active Substance: LEVOTHYROXINE SODIUM
     Route: 065
  5. BISOPROLOL FUMARATE. [Concomitant]
     Active Substance: BISOPROLOL FUMARATE
     Route: 065
  6. XARELTO [Suspect]
     Active Substance: RIVAROXABAN
     Indication: ATRIAL FIBRILLATION
     Route: 048
     Dates: start: 2017
  7. PRAVASTATIN. [Concomitant]
     Active Substance: PRAVASTATIN
     Route: 065
  8. TECTA [Concomitant]
     Active Substance: PANTOPRAZOLE MAGNESIUM
     Route: 065
  9. CHOLESTEROL [Concomitant]
     Active Substance: CHOLESTEROL
     Route: 065

REACTIONS (5)
  - Dyspnoea [Unknown]
  - Fatigue [Not Recovered/Not Resolved]
  - Eye haemorrhage [Recovered/Resolved]
  - Atrial fibrillation [Unknown]
  - Dizziness [Not Recovered/Not Resolved]
